FAERS Safety Report 15496083 (Version 1)
Quarter: 2018Q4

REPORT INFORMATION
  Report Type: Spontaneous
  Country: US (occurrence: US)
  Receive Date: 20181014
  Receipt Date: 20181014
  Transmission Date: 20190205
  Serious: No
  Sender: FDA-Public Use
  Company Number: US-JNJFOC-20180935600

PATIENT
  Age: 53 Year
  Sex: Female
  Weight: 88.45 kg

DRUGS (1)
  1. TREMFYA [Suspect]
     Active Substance: GUSELKUMAB
     Indication: PSORIASIS
     Route: 058
     Dates: start: 20170801

REACTIONS (3)
  - Polyuria [Unknown]
  - Panic reaction [Unknown]
  - Product dose omission [Unknown]

NARRATIVE: CASE EVENT DATE: 201708
